FAERS Safety Report 15028939 (Version 2)
Quarter: 2018Q3

REPORT INFORMATION
  Report Type: Spontaneous
  Country: US (occurrence: US)
  Receive Date: 20180619
  Receipt Date: 20180718
  Transmission Date: 20181010
  Serious: No
  Sender: FDA-Public Use
  Company Number: US-HORIZON-PEN-0446-2018

PATIENT
  Age: 23 Year
  Sex: Male

DRUGS (1)
  1. PENNSAID [Suspect]
     Active Substance: DICLOFENAC SODIUM
     Indication: PRODUCT USED FOR UNKNOWN INDICATION
     Dosage: 2 PUMPS BID

REACTIONS (1)
  - Drug ineffective [Unknown]
